FAERS Safety Report 8260988-8 (Version None)
Quarter: 2012Q2

REPORT INFORMATION
  Report Type: 
  Country: None (occurrence: None)
  Receive Date: 20120405
  Receipt Date: 20120330
  Transmission Date: 20120825
  Serious: No
  Sender: FDA-Public Use
  Company Number: US-PFIZER INC-2012068643

PATIENT
  Sex: Female
  Weight: 78.912 kg

DRUGS (3)
  1. ACETYLSALICYLIC ACID [Concomitant]
     Dosage: 81 MG, UNK
  2. VITAMIN B-12 [Concomitant]
     Dosage: UNK
  3. TOVIAZ [Suspect]
     Indication: INCONTINENCE
     Dosage: 10 MG, 1X/DAY
     Route: 048
     Dates: start: 20110101

REACTIONS (1)
  - DRUG INEFFECTIVE [None]
